FAERS Safety Report 5958228-5 (Version None)
Quarter: 2008Q4

REPORT INFORMATION
  Report Type: 
  Country: None (occurrence: None)
  Receive Date: 20081119
  Receipt Date: 20081119
  Transmission Date: 20090506
  Serious: Yes (Hospitalization)
  Sender: FDA-Public Use
  Company Number: US-ABBOTT-08P-163-0485682-00

PATIENT
  Sex: Female
  Weight: 72.64 kg

DRUGS (3)
  1. SYNTHROID [Suspect]
     Indication: THYROIDECTOMY
     Route: 048
     Dates: start: 20070623, end: 20080618
  2. SYNTHROID [Suspect]
     Route: 048
     Dates: start: 20080623
  3. CONJUGATED ESTROGENS [Concomitant]
     Indication: HORMONE REPLACEMENT THERAPY

REACTIONS (13)
  - CARDIAC ENZYMES INCREASED [None]
  - CEREBROVASCULAR ACCIDENT [None]
  - CHEST DISCOMFORT [None]
  - DYSPNOEA [None]
  - ELECTROCARDIOGRAM ABNORMAL [None]
  - FACIAL SPASM [None]
  - HEADACHE [None]
  - HYPOAESTHESIA [None]
  - MUSCLE SPASMS [None]
  - MYOCARDIAL INFARCTION [None]
  - PAIN IN EXTREMITY [None]
  - THYROID FUNCTION TEST ABNORMAL [None]
  - WEIGHT DECREASED [None]
